FAERS Safety Report 10086917 (Version 1)
Quarter: 2014Q2

REPORT INFORMATION
  Report Type: Spontaneous
  Country: SG (occurrence: SG)
  Receive Date: 20140418
  Receipt Date: 20140418
  Transmission Date: 20141212
  Serious: Yes (Other)
  Sender: FDA-Public Use
  Company Number: PHHY2014SG044958

PATIENT
  Age: 28 Year
  Sex: Male

DRUGS (3)
  1. EXJADE [Suspect]
     Indication: IRON OVERLOAD
     Dosage: UNK UKN, UNK
     Dates: start: 201105, end: 201312
  2. LAMIVUDINE [Concomitant]
     Indication: CHRONIC HEPATITIS B
     Dosage: UNK UKN, UNK
  3. ADEFOVIR [Concomitant]
     Indication: CHRONIC HEPATITIS B
     Dosage: UNK UKN, UNK
     Dates: end: 201403

REACTIONS (5)
  - Nephrotic syndrome [Unknown]
  - Ascites [Unknown]
  - Proteinuria [Unknown]
  - Urine protein/creatinine ratio increased [Unknown]
  - Oedema [Unknown]
